FAERS Safety Report 18198208 (Version 6)
Quarter: 2024Q1

REPORT INFORMATION
  Report Type: Other
  Country: BR (occurrence: BR)
  Receive Date: 20200826
  Receipt Date: 20240209
  Transmission Date: 20240410
  Serious: Yes (Other)
  Sender: FDA-Public Use
  Company Number: BR-002147023-NVSC2020BR232848

PATIENT
  Sex: Female

DRUGS (2)
  1. XOLAIR [Suspect]
     Active Substance: OMALIZUMAB
     Indication: Chronic spontaneous urticaria
     Route: 065
     Dates: start: 20200629
  2. XOLAIR [Suspect]
     Active Substance: OMALIZUMAB
     Route: 065
     Dates: start: 20200727

REACTIONS (8)
  - Angioedema [Recovering/Resolving]
  - Skin discolouration [Recovered/Resolved]
  - Feeling abnormal [Recovered/Resolved]
  - Pain [Recovering/Resolving]
  - Peripheral swelling [Recovered/Resolved]
  - Swelling [Recovered/Resolved]
  - Menstrual disorder [Unknown]
  - Skin striae [Unknown]

NARRATIVE: CASE EVENT DATE: 20200817
